FAERS Safety Report 12643749 (Version 1)
Quarter: 2016Q3

REPORT INFORMATION
  Report Type: Spontaneous
  Country: DK (occurrence: DK)
  Receive Date: 20160811
  Receipt Date: 20160811
  Transmission Date: 20161109
  Serious: Yes (Hospitalization)
  Sender: FDA-Public Use
  Company Number: DK-ASTRAZENECA-2016SE83903

PATIENT
  Age: 80 Year
  Sex: Female

DRUGS (11)
  1. KALEORID [Concomitant]
     Active Substance: POTASSIUM CHLORIDE
     Indication: HYPOKALAEMIA
  2. OXYCODONHYDROCHLORID [Concomitant]
     Indication: PAIN
  3. TRADOLAN [Concomitant]
     Active Substance: TRAMADOL
     Indication: PAIN
  4. VENTOLINE [Concomitant]
     Active Substance: ALBUTEROL
     Indication: ASTHMA
  5. ATACAND ZID [Suspect]
     Active Substance: CANDESARTAN CILEXETIL\HYDROCHLOROTHIAZIDE
     Indication: HYPERTENSION
     Dosage: 16 MG/12.5 MG; 1 DF EVERY DAY
     Route: 048
     Dates: end: 20160725
  6. FURIX [Concomitant]
     Active Substance: FUROSEMIDE
     Indication: ADVERSE DRUG REACTION
  7. ENALAPRIL [Concomitant]
     Active Substance: ENALAPRIL
     Indication: HYPERTENSION
  8. MOVICOL [Concomitant]
     Active Substance: POLYETHYLENE GLYCOL 3350\POTASSIUM CHLORIDE\SODIUM BICARBONATE\SODIUM CHLORIDE
     Indication: CONSTIPATION
  9. PINEX [Concomitant]
     Active Substance: ACETAMINOPHEN
     Indication: PAIN
  10. PANTOPRAZOL [Concomitant]
     Active Substance: PANTOPRAZOLE SODIUM
     Indication: GASTRIC ULCER
  11. SERETIDE [Concomitant]
     Active Substance: FLUTICASONE PROPIONATE\SALMETEROL XINAFOATE
     Indication: ASTHMA

REACTIONS (3)
  - Hyponatraemia [Unknown]
  - Fall [Unknown]
  - Concussion [Unknown]
